FAERS Safety Report 18600369 (Version 1)
Quarter: 2020Q4

REPORT INFORMATION
  Report Type: Spontaneous
  Country: ES (occurrence: ES)
  Receive Date: 20201210
  Receipt Date: 20201210
  Transmission Date: 20210114
  Serious: Yes (Hospitalization)
  Sender: FDA-Public Use
  Company Number: ES-ASTRAZENECA-2020SF61352

PATIENT
  Sex: Male

DRUGS (1)
  1. DAPAGLIFLOZINA [Suspect]
     Active Substance: DAPAGLIFLOZIN
     Route: 048
     Dates: start: 202006, end: 2020

REACTIONS (1)
  - Abdominal pain upper [Recovered/Resolved]

NARRATIVE: CASE EVENT DATE: 202008
